FAERS Safety Report 22655277 (Version 7)
Quarter: 2024Q1

REPORT INFORMATION
  Report Type: Spontaneous
  Country: US (occurrence: US)
  Receive Date: 20230629
  Receipt Date: 20240315
  Transmission Date: 20240409
  Serious: Yes (Other)
  Sender: FDA-Public Use
  Company Number: US-PFIZER INC-PV202300113972

PATIENT
  Age: 72 Year
  Sex: Female
  Weight: 68.027 kg

DRUGS (1)
  1. XELJANZ XR [Suspect]
     Active Substance: TOFACITINIB CITRATE
     Dosage: 11 MG, 1X/DAY

REACTIONS (5)
  - Skin cancer [Unknown]
  - Arthropathy [Unknown]
  - Rash [Unknown]
  - Joint injury [Unknown]
  - Eye infection [Unknown]
